FAERS Safety Report 19197348 (Version 1)
Quarter: 2021Q2

REPORT INFORMATION
  Report Type: Report from Study
  Country: US (occurrence: US)
  Receive Date: 20210429
  Receipt Date: 20210429
  Transmission Date: 20210717
  Serious: Yes (Other)
  Sender: FDA-Public Use
  Company Number: US-TAKEDA-US202009979

PATIENT
  Age: 65 Year
  Sex: Female
  Weight: 69 kg

DRUGS (44)
  1. GAMMAGARD [Suspect]
     Active Substance: HUMAN IMMUNOGLOBULIN G
     Indication: MYASTHENIA GRAVIS
     Dosage: 65 GRAM, Q2WEEKS
     Route: 042
     Dates: start: 20210407
  2. IBUPROFEN. [Concomitant]
     Active Substance: IBUPROFEN
  3. CURCUMIN [Concomitant]
     Active Substance: CURCUMIN
  4. HAEGARDA [Concomitant]
     Active Substance: HUMAN C1-ESTERASE INHIBITOR
  5. DIAMINE OXIDASE [Concomitant]
  6. ICATIBANT [Suspect]
     Active Substance: ICATIBANT ACETATE
     Indication: IMMUNE SYSTEM DISORDER
     Dosage: 30 MILLIGRAM, AS REQ^D
     Route: 058
     Dates: start: 20121023
  7. ICATIBANT [Suspect]
     Active Substance: ICATIBANT ACETATE
     Indication: IMMUNE SYSTEM DISORDER
     Dosage: 30 MILLIGRAM, AS REQ^D
     Route: 058
     Dates: start: 20121023
  8. ASHWAGANDHA [WITHANIA SOMNIFERA ROOT] [Concomitant]
     Indication: PRODUCT USED FOR UNKNOWN INDICATION
  9. RESTASIS [Concomitant]
     Active Substance: CYCLOSPORINE
     Indication: PRODUCT USED FOR UNKNOWN INDICATION
  10. BERINERT [Concomitant]
     Active Substance: HUMAN C1-ESTERASE INHIBITOR
  11. PNEUMOVAX 23 [Concomitant]
     Active Substance: PNEUMOCOCCAL VACCINE, POLYVALENT 23
  12. HEPARIN [Concomitant]
     Active Substance: HEPARIN SODIUM
  13. EPINEPHRINE. [Concomitant]
     Active Substance: EPINEPHRINE
  14. NASAL SPRAY II [Concomitant]
  15. GAMMAGARD [Suspect]
     Active Substance: HUMAN IMMUNOGLOBULIN G
     Indication: POLYMYOSITIS
  16. STRESS B COMPLEX [VITAMINS NOS] [Concomitant]
     Indication: PRODUCT USED FOR UNKNOWN INDICATION
  17. BRIMONIDINE [Concomitant]
     Active Substance: BRIMONIDINE TARTRATE
  18. CLONAZEPAM. [Concomitant]
     Active Substance: CLONAZEPAM
  19. VALERIAN ROOT [VALERIANA OFFICINALIS ROOT] [Concomitant]
     Active Substance: VALERIAN
  20. COLLAGEN [Concomitant]
     Active Substance: COLLAGEN
  21. PREDNISONE. [Concomitant]
     Active Substance: PREDNISONE
     Indication: PRODUCT USED FOR UNKNOWN INDICATION
  22. ESTRADIOL. [Concomitant]
     Active Substance: ESTRADIOL
     Indication: PRODUCT USED FOR UNKNOWN INDICATION
  23. PROGESTERONE. [Concomitant]
     Active Substance: PROGESTERONE
     Indication: PRODUCT USED FOR UNKNOWN INDICATION
  24. SIMETHICONE (DIMETHICONE) [Concomitant]
     Active Substance: DIMETHICONE
  25. LOPERAMIDE [Concomitant]
     Active Substance: LOPERAMIDE
  26. FLUBLOK QUADRIVALENT NOS [Concomitant]
     Active Substance: INFLUENZA VIRUS VACCINE
  27. GINGER ROOT [ZINGIBER OFFICINALE RHIZOME] [Concomitant]
  28. IMODIUM A?D [Concomitant]
     Active Substance: LOPERAMIDE HYDROCHLORIDE
  29. SACCHAROMYCES BOULARDII [Concomitant]
     Active Substance: SACCHAROMYCES CEREVISIAE
  30. LOTEMAX [Concomitant]
     Active Substance: LOTEPREDNOL ETABONATE
  31. ACETAMINOPHEN. [Concomitant]
     Active Substance: ACETAMINOPHEN
  32. PYRIDOSTIGMINE [Concomitant]
     Active Substance: PYRIDOSTIGMINE
  33. METHYLPREDNISOLONE. [Concomitant]
     Active Substance: METHYLPREDNISOLONE
  34. VITAMIN D3 [Concomitant]
     Active Substance: CHOLECALCIFEROL
     Indication: PRODUCT USED FOR UNKNOWN INDICATION
  35. DIPHENHYDRAMINE. [Concomitant]
     Active Substance: DIPHENHYDRAMINE
  36. NORMAL SALINE [Concomitant]
     Active Substance: SODIUM CHLORIDE
  37. PROLENSA [Concomitant]
     Active Substance: BROMFENAC SODIUM
  38. SHINGRIX [Concomitant]
     Active Substance: RECOMBINANT VARICELLA ZOSTER VIRUS (VZV) GLYCOPROTEIN E
  39. GAMMAGARD [Suspect]
     Active Substance: HUMAN IMMUNOGLOBULIN G
     Indication: IMMUNE SYSTEM DISORDER
  40. CLOBETASOL [Concomitant]
     Active Substance: CLOBETASOL
  41. CALCIUM CITRATE [Concomitant]
     Active Substance: CALCIUM CITRATE
  42. SOLU?MEDROL [Concomitant]
     Active Substance: METHYLPREDNISOLONE SODIUM SUCCINATE
  43. BESIVANCE [Concomitant]
     Active Substance: BESIFLOXACIN
  44. TUBERCULIN NOS [Concomitant]
     Active Substance: TUBERCULIN PURIFIED PROTEIN DERIVATIVE

REACTIONS (3)
  - Product use in unapproved indication [Unknown]
  - Cataract [Unknown]
  - Catheter site erythema [Unknown]

NARRATIVE: CASE EVENT DATE: 20210413
